FAERS Safety Report 11216259 (Version 1)
Quarter: 2015Q2

REPORT INFORMATION
  Report Type: Spontaneous
  Country: BE (occurrence: BE)
  Receive Date: 20150624
  Receipt Date: 20150624
  Transmission Date: 20150821
  Serious: Yes (Hospitalization, Other)
  Sender: FDA-Public Use
  Company Number: BE-ELI_LILLY_AND_COMPANY-BE201506004161

PATIENT
  Age: 38 Year
  Sex: Male

DRUGS (1)
  1. ZYPADHERA [Suspect]
     Active Substance: OLANZAPINE PAMOATE
     Indication: PRODUCT USED FOR UNKNOWN INDICATION
     Dosage: 405 MG, UNKNOWN
     Route: 030
     Dates: start: 20150513

REACTIONS (9)
  - Malaise [Not Recovered/Not Resolved]
  - Vertigo [Unknown]
  - Dry mouth [Unknown]
  - Somnolence [Unknown]
  - Discomfort [Recovered/Resolved]
  - Confusional state [Unknown]
  - Agitation [Unknown]
  - Asthenia [Unknown]
  - Disorientation [Unknown]

NARRATIVE: CASE EVENT DATE: 20150610
